FAERS Safety Report 9455199 (Version 1)
Quarter: 2013Q3

REPORT INFORMATION
  Report Type: Spontaneous
  Country: US (occurrence: US)
  Receive Date: 20130813
  Receipt Date: 20130813
  Transmission Date: 20140515
  Serious: No
  Sender: FDA-Public Use
  Company Number: US-FOUGERA-2013FO000009

PATIENT
  Age: 73 Year
  Sex: Female

DRUGS (8)
  1. LIDOCAINE [Suspect]
     Indication: NEUROPATHY PERIPHERAL
     Route: 061
     Dates: start: 201202
  2. NEURONTIN [Concomitant]
     Indication: PAIN
     Dates: start: 2012
  3. NEXIUM [Concomitant]
     Indication: GASTROOESOPHAGEAL REFLUX DISEASE
  4. DILAUDID [Concomitant]
     Indication: PAIN
     Dates: start: 201202
  5. FISH OIL [Concomitant]
     Indication: ARTHRITIS
  6. VITAMIN D3 [Concomitant]
     Indication: MEDICAL DIET
  7. VITAMIN D3 [Concomitant]
     Indication: VITAMIN D DECREASED
  8. TYLENOL [Concomitant]
     Indication: PRODUCT USED FOR UNKNOWN INDICATION

REACTIONS (3)
  - Burning sensation [Unknown]
  - Condition aggravated [Unknown]
  - Off label use [Not Recovered/Not Resolved]
